FAERS Safety Report 24144994 (Version 3)
Quarter: 2024Q3

REPORT INFORMATION
  Report Type: Spontaneous
  Country: HR (occurrence: HR)
  Receive Date: 20240729
  Receipt Date: 20240809
  Transmission Date: 20241017
  Serious: Yes (Other)
  Sender: Haleon PLC
  Company Number: HR-HALMED-300086079

PATIENT
  Age: 24 Year
  Sex: Male

DRUGS (3)
  1. VOLTAREN [Suspect]
     Active Substance: DICLOFENAC SODIUM
     Indication: Product used for unknown indication
     Dosage: 2 VOLTAREN 75 MG CARDS
     Route: 048
     Dates: start: 20240610, end: 20240610
  2. RIVOTRIL [Suspect]
     Active Substance: CLONAZEPAM
     Indication: Product used for unknown indication
     Dosage: MOUTHFUL (50 TBL) 0.5 MG RIVOTRIL
     Route: 048
     Dates: start: 20240610, end: 20240610
  3. HALOPERIDOL [Suspect]
     Active Substance: HALOPERIDOL
     Indication: Product used for unknown indication
     Dosage: 25 TBL HALDOL OF 2 MG
     Route: 048
     Dates: start: 20240610, end: 20240610

REACTIONS (3)
  - Suicide attempt [Unknown]
  - Vomiting [Unknown]
  - Intentional overdose [Unknown]

NARRATIVE: CASE EVENT DATE: 20240610
